FAERS Safety Report 4994442-3 (Version None)
Quarter: 2006Q2

REPORT INFORMATION
  Report Type: 
  Country: None (occurrence: None)
  Receive Date: 20060503
  Receipt Date: 20060420
  Transmission Date: 20061013
  Serious: Yes (Hospitalization)
  Sender: FDA-Public Use
  Company Number: 2006054550

PATIENT
  Age: 54 Year
  Sex: Male

DRUGS (4)
  1. PHENYTOIN [Suspect]
     Indication: CONVULSION PROPHYLAXIS
     Dosage: 300 MG (300 MG, 1 IN 1 D), ORAL
     Route: 048
     Dates: start: 20051125, end: 20051223
  2. CHLORPROMAZINE HCL [Concomitant]
  3. DILTIAZEM [Concomitant]
  4. PROPRANOLOL [Concomitant]

REACTIONS (2)
  - RASH MACULAR [None]
  - RASH PRURITIC [None]
